FAERS Safety Report 17965093 (Version 1)
Quarter: 2020Q2

REPORT INFORMATION
  Report Type: Report from Study
  Country: US (occurrence: US)
  Receive Date: 20200630
  Receipt Date: 20200630
  Transmission Date: 20200714
  Serious: Yes (Other)
  Sender: FDA-Public Use
  Company Number: US-ACTELION-A-NJ2020-206555

PATIENT
  Age: 64 Year
  Sex: Female

DRUGS (12)
  1. CHLORHEXIDINE GLUCONATE. [Concomitant]
     Active Substance: CHLORHEXIDINE GLUCONATE
  2. AQUAPHOR ANTIBIOTIC [Concomitant]
  3. DILTIAZEM. [Concomitant]
     Active Substance: DILTIAZEM
  4. OPSUMIT [Suspect]
     Active Substance: MACITENTAN
     Indication: PULMONARY ARTERIAL HYPERTENSION
     Dosage: 10 MG, QD
     Route: 048
     Dates: start: 201701
  5. TADALAFIL. [Concomitant]
     Active Substance: TADALAFIL
  6. HYDROCORTISONE. [Concomitant]
     Active Substance: HYDROCORTISONE
  7. FUROSEMIDE. [Concomitant]
     Active Substance: FUROSEMIDE
  8. MOMETASONE [Concomitant]
     Active Substance: MOMETASONE
  9. KETOCONAZOLE. [Concomitant]
     Active Substance: KETOCONAZOLE
  10. ALBUTEROL HFA [Concomitant]
     Active Substance: ALBUTEROL SULFATE
  11. AZATHIOPRINE. [Concomitant]
     Active Substance: AZATHIOPRINE
  12. TRIAMCINOLONE [Concomitant]
     Active Substance: TRIAMCINOLONE

REACTIONS (3)
  - Abdominal pain [Recovering/Resolving]
  - Hypokalaemia [Recovering/Resolving]
  - Arthralgia [Recovering/Resolving]

NARRATIVE: CASE EVENT DATE: 20200518
